FAERS Safety Report 14809369 (Version 2)
Quarter: 2018Q3

REPORT INFORMATION
  Report Type: Report from Study
  Country: US (occurrence: US)
  Receive Date: 20180425
  Receipt Date: 20180719
  Transmission Date: 20181010
  Serious: No
  Sender: FDA-Public Use
  Company Number: US-AMGEN-USASL2018029875

PATIENT
  Age: 54 Year
  Sex: Female

DRUGS (1)
  1. REPATHA [Suspect]
     Active Substance: EVOLOCUMAB
     Indication: HYPERCHOLESTEROLAEMIA
     Dosage: 140 MG, Q2WK
     Route: 065
     Dates: end: 201802

REACTIONS (5)
  - Paranasal sinus hypersecretion [Unknown]
  - Nasal discomfort [Unknown]
  - Abdominal pain upper [Recovered/Resolved]
  - Eye irritation [Unknown]
  - Headache [Recovered/Resolved]
